FAERS Safety Report 11364943 (Version 2)
Quarter: 2015Q3

REPORT INFORMATION
  Report Type: Spontaneous
  Country: RU (occurrence: RU)
  Receive Date: 20150811
  Receipt Date: 20150821
  Transmission Date: 20151125
  Serious: Yes (Hospitalization)
  Sender: FDA-Public Use
  Company Number: RU-MALLINCKRODT-T201503764

PATIENT
  Age: 41 Year

DRUGS (1)
  1. OPTIRAY [Suspect]
     Active Substance: IOVERSOL
     Indication: COMPUTERISED TOMOGRAM
     Dosage: 100 ML, SINGLE
     Route: 042
     Dates: start: 20150712, end: 20150712

REACTIONS (3)
  - Vomiting [Unknown]
  - Asphyxia [Unknown]
  - Nausea [Unknown]

NARRATIVE: CASE EVENT DATE: 20150712
